FAERS Safety Report 7624136-7 (Version None)
Quarter: 2011Q3

REPORT INFORMATION
  Report Type: 
  Country: None (occurrence: None)
  Receive Date: 20110720
  Receipt Date: 20110622
  Transmission Date: 20111222
  Serious: Yes (Hospitalization)
  Sender: FDA-Public Use
  Company Number: JP-AMGEN-JPNCT2011034098

PATIENT
  Age: 51 Year
  Sex: Male
  Weight: 87 kg

DRUGS (9)
  1. OXYCONTIN [Concomitant]
     Indication: CANCER PAIN
     Dosage: 30 MG, UNK
     Route: 048
     Dates: start: 20110501
  2. IRINOTECAN HCL [Concomitant]
     Indication: COLORECTAL CANCER
     Dosage: 100 MG, Q2WK
     Route: 041
     Dates: start: 20110617, end: 20110617
  3. PANITUMUMAB [Suspect]
     Indication: COLORECTAL CANCER
     Dosage: 500 MG, Q2WK
     Route: 041
     Dates: start: 20110617, end: 20110617
  4. OXYCONTIN [Concomitant]
     Route: 048
     Dates: start: 20110501
  5. COUPELACIN TAKATA [Concomitant]
     Route: 048
     Dates: start: 20110617
  6. LEUCOVORIN CALCIUM [Concomitant]
     Indication: COLORECTAL CANCER
     Dosage: 150 MG, Q2WK
     Route: 041
     Dates: start: 20110617, end: 20110617
  7. FLUOROURACIL [Concomitant]
     Indication: COLORECTAL CANCER
     Dosage: 2000 MG, Q2WK
     Route: 041
     Dates: start: 20110617, end: 20110619
  8. LYRICA [Concomitant]
     Indication: CANCER PAIN
     Dosage: 300 MG, QD
     Route: 048
     Dates: start: 20110501
  9. ALLEGRA [Concomitant]
     Route: 048
     Dates: start: 20110617

REACTIONS (2)
  - CHILLS [None]
  - DECREASED APPETITE [None]
